FAERS Safety Report 4860676-1 (Version None)
Quarter: 2005Q4

REPORT INFORMATION
  Report Type: 
  Country: None (occurrence: None)
  Receive Date: 20051216
  Receipt Date: 20051205
  Transmission Date: 20060501
  Serious: Yes (Hospitalization, Other)
  Sender: FDA-Public Use
  Company Number: US_0503114293

PATIENT
  Age: 14 Year
  Sex: Female
  Weight: 45.5 kg

DRUGS (2)
  1. STRATTERA [Suspect]
     Indication: ATTENTION DEFICIT/HYPERACTIVITY DISORDER
     Dosage: 90 MG, DAILY (1/D)
     Dates: start: 20040101, end: 20050308
  2. ZOLOFT [Concomitant]

REACTIONS (8)
  - APLASTIC ANAEMIA [None]
  - DIARRHOEA [None]
  - HEPATIC FAILURE [None]
  - INTERNATIONAL NORMALISED RATIO INCREASED [None]
  - PRESCRIBED OVERDOSE [None]
  - PROTHROMBIN LEVEL INCREASED [None]
  - PROTHROMBIN TIME PROLONGED [None]
  - PROTHROMBIN TIME SHORTENED [None]
